FAERS Safety Report 4845048-8 (Version None)
Quarter: 2005Q4

REPORT INFORMATION
  Report Type: 
  Country: None (occurrence: None)
  Receive Date: 20051205
  Receipt Date: 20051123
  Transmission Date: 20060501
  Serious: Yes (Life-Threatening, Hospitalization)
  Sender: FDA-Public Use
  Company Number: TR-MERCK-0511TUR00003

PATIENT
  Age: 56 Year
  Sex: Male

DRUGS (1)
  1. INDOCIN [Suspect]
     Indication: ARTHRITIS
     Route: 048

REACTIONS (5)
  - COMA [None]
  - CONVULSION [None]
  - HYPOTENSION [None]
  - HYPOXIA [None]
  - PANCREATITIS ACUTE [None]
